FAERS Safety Report 20327428 (Version 1)
Quarter: 2022Q1

REPORT INFORMATION
  Report Type: Spontaneous
  Country: US (occurrence: None)
  Receive Date: 20220111
  Receipt Date: 20220111
  Transmission Date: 20220424
  Serious: Yes (Other)
  Sender: FDA-Public Use
  Company Number: None

PATIENT
  Age: 46 Year
  Sex: Female
  Weight: 78.5 kg

DRUGS (1)
  1. CASIRIVIMAB\IMDEVIMAB [Suspect]
     Active Substance: CASIRIVIMAB\IMDEVIMAB
     Indication: COVID-19
     Dosage: FREQUENCY : ONCE;?
     Route: 040
     Dates: start: 20220111, end: 20220111

REACTIONS (5)
  - Infusion related reaction [None]
  - Chest pain [None]
  - Dyspnoea [None]
  - Back pain [None]
  - Blood pressure systolic increased [None]

NARRATIVE: CASE EVENT DATE: 20220111
